FAERS Safety Report 8529432-7 (Version None)
Quarter: 2012Q3

REPORT INFORMATION
  Report Type: 
  Country: None (occurrence: None)
  Receive Date: 20120723
  Receipt Date: 20120713
  Transmission Date: 20120928
  Serious: Yes (Other)
  Sender: FDA-Public Use
  Company Number: GB-JNJFOC-20120107424

PATIENT
  Sex: Female

DRUGS (2)
  1. METFORMIN HYDROCHLORIDE [Concomitant]
     Route: 065
     Dates: start: 20110913
  2. RISPERDAL CONSTA [Suspect]
     Indication: SCHIZOPHRENIA
     Route: 030
     Dates: start: 20100901, end: 20111201

REACTIONS (9)
  - RENAL IMPAIRMENT [None]
  - GASTRIC INFECTION [None]
  - CHEST PAIN [None]
  - LOSS OF CONSCIOUSNESS [None]
  - ABDOMINAL DISTENSION [None]
  - ASTHENIA [None]
  - INCONTINENCE [None]
  - MALAISE [None]
  - GINGIVAL SWELLING [None]
